FAERS Safety Report 5528308-7 (Version None)
Quarter: 2007Q4

REPORT INFORMATION
  Report Type: 
  Country: None (occurrence: None)
  Receive Date: 20071128
  Receipt Date: 20071116
  Transmission Date: 20080405
  Serious: Yes (Other)
  Sender: FDA-Public Use
  Company Number: FR-PFIZER INC-2007097579

PATIENT
  Sex: Female

DRUGS (2)
  1. CHAMPIX [Suspect]
  2. INSULIN [Concomitant]

REACTIONS (1)
  - HYPOGLYCAEMIC COMA [None]
